FAERS Safety Report 8471908-5 (Version None)
Quarter: 2012Q2

REPORT INFORMATION
  Report Type: 
  Country: None (occurrence: None)
  Receive Date: 20120627
  Receipt Date: 20120620
  Transmission Date: 20120825
  Serious: Yes (Hospitalization)
  Sender: FDA-Public Use
  Company Number: IT-ABBOTT-12P-083-0937748-00

PATIENT
  Sex: Female

DRUGS (5)
  1. IBUPROFEN [Concomitant]
     Indication: PRODUCT USED FOR UNKNOWN INDICATION
     Dosage: 4 ML DAILY
     Route: 048
     Dates: start: 20120406, end: 20120407
  2. SEVOFLURANE [Suspect]
     Indication: GENERAL ANAESTHESIA
     Dosage: 6 %
     Dates: start: 20120404, end: 20120404
  3. ROCEPHIN [Concomitant]
     Indication: PRODUCT USED FOR UNKNOWN INDICATION
     Dosage: 500MG DAILY
     Route: 042
     Dates: start: 20120405, end: 20120410
  4. FENTANYL CITRATE [Suspect]
     Indication: GENERAL ANAESTHESIA
     Dosage: TOTAL DOSE: 30 ML
     Route: 042
     Dates: start: 20120404, end: 20120404
  5. NORCURON [Suspect]
     Indication: GENERAL ANAESTHESIA
     Dosage: TOTAL DOSE: 1MG
     Route: 042
     Dates: start: 20120404, end: 20120404

REACTIONS (2)
  - PYREXIA [None]
  - HYPERTRANSAMINASAEMIA [None]
